FAERS Safety Report 12747607 (Version 1)
Quarter: 2016Q3

REPORT INFORMATION
  Report Type: Spontaneous
  Country: US (occurrence: US)
  Receive Date: 20160915
  Receipt Date: 20160915
  Transmission Date: 20161109
  Serious: No
  Sender: FDA-Public Use
  Company Number: US-JAZZ-2016-US-009936

PATIENT
  Sex: Female

DRUGS (9)
  1. XYREM [Suspect]
     Active Substance: SODIUM OXYBATE
     Dosage: DOSE ADJUSTMENTS
     Route: 048
  2. NORCO [Concomitant]
     Active Substance: ACETAMINOPHEN\HYDROCODONE BITARTRATE
  3. NUVIGIL [Concomitant]
     Active Substance: ARMODAFINIL
  4. XYREM [Suspect]
     Active Substance: SODIUM OXYBATE
     Dosage: 4.5 G ONCE NIGHTLY ON SUNDAY THRU THURSDAY AND THEN TAKE 3 G AS SECOND DOSE 2.5-4 HOURS LATER ON FRI
     Route: 048
     Dates: start: 201603
  5. SONATA [Concomitant]
     Active Substance: ZALEPLON
  6. ZYRTEC [Concomitant]
     Active Substance: CETIRIZINE HYDROCHLORIDE
  7. HORMONES [Concomitant]
     Active Substance: UNSPECIFIED INGREDIENT
  8. METFORMIN HCL [Concomitant]
     Active Substance: METFORMIN HYDROCHLORIDE
  9. XYREM [Suspect]
     Active Substance: SODIUM OXYBATE
     Indication: NARCOLEPSY
     Dosage: 2.25 G, BID
     Route: 048
     Dates: start: 201511, end: 201511

REACTIONS (4)
  - Hypersensitivity [Not Recovered/Not Resolved]
  - Abdominal discomfort [Unknown]
  - Feeling drunk [Unknown]
  - Dyspnoea [Unknown]
